FAERS Safety Report 7970405-0 (Version None)
Quarter: 2011Q4

REPORT INFORMATION
  Report Type: 
  Country: None (occurrence: None)
  Receive Date: 20111212
  Receipt Date: 20111129
  Transmission Date: 20120403
  Serious: Yes (Hospitalization, Other)
  Sender: FDA-Public Use
  Company Number: PHHY2011CA70781

PATIENT
  Sex: Female

DRUGS (3)
  1. SANDOSTATIN LAR [Suspect]
     Indication: PANCREATIC FISTULA
     Dosage: 20 MG, EVERY 4 WEEKS
     Route: 030
     Dates: start: 20110212
  2. PANTOPRAZOLE SODIUM [Concomitant]
  3. TPN [Concomitant]

REACTIONS (4)
  - IMPAIRED HEALING [None]
  - WOUND [None]
  - HAEMOGLOBIN DECREASED [None]
  - INJECTION SITE DISCOMFORT [None]
